FAERS Safety Report 25620163 (Version 2)
Quarter: 2025Q3

REPORT INFORMATION
  Report Type: Report from Study
  Country: US (occurrence: US)
  Receive Date: 20250730
  Receipt Date: 20250818
  Transmission Date: 20251020
  Serious: No
  Sender: DECIPHERA PHARMACEUTICALS
  Company Number: US-DECIPHERA PHARMACEUTICALS LLC-2025US000861

PATIENT
  Age: 66 Year
  Sex: Male

DRUGS (2)
  1. ROMVIMZA [Suspect]
     Active Substance: VIMSELTINIB
     Indication: Giant cell tumour of tendon sheath
     Route: 048
     Dates: start: 20250625, end: 20250702
  2. ROMVIMZA [Suspect]
     Active Substance: VIMSELTINIB
     Dates: start: 20250715, end: 20250802

REACTIONS (5)
  - Haemoptysis [Unknown]
  - Dysphonia [Unknown]
  - Eating disorder [Unknown]
  - Pyrexia [Recovered/Resolved]
  - Nausea [Unknown]

NARRATIVE: CASE EVENT DATE: 20250702
